FAERS Safety Report 6349525-2 (Version None)
Quarter: 2009Q3

REPORT INFORMATION
  Report Type: 
  Country: None (occurrence: None)
  Receive Date: 20090911
  Receipt Date: 20090901
  Transmission Date: 20100115
  Serious: Yes (Death, Other)
  Sender: FDA-Public Use
  Company Number: BR-PFIZER INC-2009262936

PATIENT
  Age: 82 Year

DRUGS (1)
  1. GEODON [Suspect]

REACTIONS (2)
  - CARDIAC OPERATION [None]
  - LUNG DISORDER [None]
